FAERS Safety Report 5469805-2 (Version None)
Quarter: 2007Q3

REPORT INFORMATION
  Report Type: 
  Country: None (occurrence: None)
  Receive Date: 20070927
  Receipt Date: 20070924
  Transmission Date: 20080115
  Serious: Yes (Hospitalization)
  Sender: FDA-Public Use
  Company Number: BR-BRISTOL-MYERS SQUIBB COMPANY-13892039

PATIENT
  Age: 56 Year
  Sex: Female

DRUGS (4)
  1. ABATACEPT [Suspect]
     Indication: RHEUMATOID ARTHRITIS
     Route: 042
     Dates: start: 20030602
  2. METHOTREXATE [Concomitant]
     Dates: start: 20021101, end: 20070827
  3. PREDNISONE [Concomitant]
     Dates: start: 20041019
  4. IBUPROFEN [Concomitant]
     Dates: start: 20060304

REACTIONS (1)
  - SUBCUTANEOUS ABSCESS [None]
